FAERS Safety Report 11490926 (Version 1)
Quarter: 2015Q3

REPORT INFORMATION
  Report Type: Report from Study
  Country: NL (occurrence: NL)
  Receive Date: 20150910
  Receipt Date: 20150910
  Transmission Date: 20151125
  Serious: Yes (Hospitalization)
  Sender: FDA-Public Use
  Company Number: PHHY2015NL106607

PATIENT
  Age: 87 Year
  Sex: Female

DRUGS (1)
  1. SANDOSTATINE LAR [Suspect]
     Active Substance: OCTREOTIDE ACETATE
     Indication: PANCREATIC NEUROENDOCRINE TUMOUR
     Dosage: 30 MG/2 ML (EVERY 4 WEEKS)
     Route: 030

REACTIONS (5)
  - Wound [Unknown]
  - Dyspnoea [Recovered/Resolved with Sequelae]
  - Injection site haemorrhage [Unknown]
  - Anxiety [Unknown]
  - Hypoventilation [Recovered/Resolved with Sequelae]

NARRATIVE: CASE EVENT DATE: 20150817
